FAERS Safety Report 14313888 (Version 1)
Quarter: 2017Q4

REPORT INFORMATION
  Report Type: Spontaneous
  Country: BE (occurrence: BE)
  Receive Date: 20171221
  Receipt Date: 20171221
  Transmission Date: 20180321
  Serious: Yes (Other)
  Sender: FDA-Public Use
  Company Number: BE-MYLANLABS-2017M1077808

PATIENT
  Age: 56 Year

DRUGS (7)
  1. MOXIFLOXACIN. [Suspect]
     Active Substance: MOXIFLOXACIN
     Dosage: 0.5% 5/DAYS
     Route: 061
  2. MOXIFLOXACIN. [Suspect]
     Active Substance: MOXIFLOXACIN
     Indication: CORNEAL ABSCESS
     Dosage: 0.5% 1/H
     Route: 061
  3. TOBRAMYCIN. [Suspect]
     Active Substance: TOBRAMYCIN
     Indication: CORNEAL ABSCESS
     Dosage: 0.3% 1/H
     Route: 061
  4. MOXIFLOXACIN. [Suspect]
     Active Substance: MOXIFLOXACIN
     Dosage: 0.5% 3/DAYS
     Route: 061
  5. DESOMEDIN [Concomitant]
     Indication: CORNEAL ABSCESS
     Dosage: 1% 8/DAYS
     Route: 061
  6. DESOMEDIN [Concomitant]
     Dosage: 1% 5/DAYS
     Route: 061
  7. TOBRAMYCIN. [Suspect]
     Active Substance: TOBRAMYCIN
     Dosage: 0.3% 5/DAYS
     Route: 061

REACTIONS (2)
  - Corneal perforation [Recovered/Resolved]
  - Corneal flap complication [Recovered/Resolved]
